FAERS Safety Report 15710256 (Version 1)
Quarter: 2018Q4

REPORT INFORMATION
  Report Type: Spontaneous
  Country: US (occurrence: US)
  Receive Date: 20181211
  Receipt Date: 20181211
  Transmission Date: 20190205
  Serious: Yes (Disabling)
  Sender: FDA-Public Use
  Company Number: US-OTSUKA-2017_025542

PATIENT
  Age: 48 Year
  Sex: Female

DRUGS (4)
  1. ABILIFY [Suspect]
     Active Substance: ARIPIPRAZOLE
     Indication: BIPOLAR DISORDER
     Dosage: 5 MG, QD
     Route: 048
     Dates: start: 20070911
  2. ABILIFY [Suspect]
     Active Substance: ARIPIPRAZOLE
     Dosage: 10 MG, QD
     Route: 048
  3. ABILIFY [Suspect]
     Active Substance: ARIPIPRAZOLE
     Dosage: 20 MG, QD
     Route: 048
     Dates: end: 201703
  4. ARIPIPRAZOLE. [Concomitant]
     Active Substance: ARIPIPRAZOLE
     Indication: PRODUCT USED FOR UNKNOWN INDICATION
     Dosage: UNK
     Route: 065
     Dates: start: 20160414, end: 201702

REACTIONS (27)
  - Endometrial ablation [Unknown]
  - Anxiety [Unknown]
  - Compulsive shopping [Unknown]
  - Limb injury [Unknown]
  - Asthma [Unknown]
  - Tooth loss [Unknown]
  - Fall [Unknown]
  - Insomnia [Unknown]
  - Weight increased [Unknown]
  - Economic problem [Unknown]
  - Upper respiratory tract infection [Unknown]
  - Obsessive-compulsive disorder [Recovered/Resolved]
  - Pain in extremity [Unknown]
  - Eustachian tube dysfunction [Unknown]
  - Bacterial infection [Unknown]
  - Condition aggravated [Recovering/Resolving]
  - Adverse event [Unknown]
  - Genital herpes simplex [Unknown]
  - Upper-airway cough syndrome [Unknown]
  - Irritability [Unknown]
  - Divorced [Unknown]
  - Headache [Unknown]
  - Gambling disorder [Recovering/Resolving]
  - Rhinorrhoea [Unknown]
  - Psychomotor hyperactivity [Unknown]
  - Rash [Unknown]
  - Therapeutic response unexpected [Unknown]

NARRATIVE: CASE EVENT DATE: 20120413
